FAERS Safety Report 14632802 (Version 1)
Quarter: 2018Q1

REPORT INFORMATION
  Report Type: Spontaneous
  Country: AU (occurrence: AU)
  Receive Date: 20180313
  Receipt Date: 20180313
  Transmission Date: 20180509
  Serious: Yes (Other)
  Sender: FDA-Public Use
  Company Number: PHHY2018AU041313

PATIENT
  Age: 71 Year
  Sex: Female

DRUGS (2)
  1. TAMSULOSIN SANDOZ [Suspect]
     Active Substance: TAMSULOSIN
     Indication: HYPERTENSION
     Dosage: 0.5 DF, QD
     Route: 065
  2. NOTEN [Concomitant]
     Active Substance: ATENOLOL
     Indication: SURGERY
     Route: 065

REACTIONS (4)
  - Hypotension [Unknown]
  - Nausea [Unknown]
  - Heart rate decreased [Unknown]
  - Wrong technique in product usage process [Unknown]
